FAERS Safety Report 17091003 (Version 2)
Quarter: 2019Q4

REPORT INFORMATION
  Report Type: Spontaneous
  Country: US (occurrence: US)
  Receive Date: 20191129
  Receipt Date: 20191210
  Transmission Date: 20200122
  Serious: Yes (Other)
  Sender: FDA-Public Use
  Company Number: US-AUROBINDO-AUR-APL-2019-074580

PATIENT
  Age: 65 Year
  Sex: Female

DRUGS (16)
  1. TOPIRAMATE. [Suspect]
     Active Substance: TOPIRAMATE
     Indication: BACK PAIN
     Dosage: 25 MILLIGRAM EVERY EVENING
     Route: 065
  2. TOPIRAMATE. [Suspect]
     Active Substance: TOPIRAMATE
     Dosage: 25 MILLIGRAM, ONE MONTH AFTER SURGERY
     Route: 065
  3. LIDOCAINE. [Concomitant]
     Active Substance: LIDOCAINE
     Dosage: 5% IN 5 ML IN 2 MONTHS
     Route: 008
  4. METHYLPREDNISOLONE. [Concomitant]
     Active Substance: METHYLPREDNISOLONE
     Dosage: 80 MILLIGRAM IN 5 MONTHS
     Route: 008
  5. LIDOCAINE. [Concomitant]
     Active Substance: LIDOCAINE
     Indication: BACK PAIN
     Dosage: 5% IN 5 ML
     Route: 008
  6. METHYLPREDNISOLONE. [Concomitant]
     Active Substance: METHYLPREDNISOLONE
     Indication: BACK PAIN
     Dosage: 80 MILLIGRAM
     Route: 008
  7. LIDOCAINE. [Concomitant]
     Active Substance: LIDOCAINE
     Dosage: 5% IN 5 ML IN 5 MONTHS, 4TH INJECTION
     Route: 008
  8. OMNIPAQUE [Concomitant]
     Active Substance: IOHEXOL
     Dosage: 300 MG IODINE/ML SOLUTIONIN, 4TH INJECTION
     Route: 042
  9. OMNIPAQUE [Concomitant]
     Active Substance: IOHEXOL
     Dosage: 300 MG IODINE/ML SOLUTIONIN 5 MONTHS
     Route: 042
  10. OMNIPAQUE [Concomitant]
     Active Substance: IOHEXOL
     Dosage: 300 MG IODINE/ML SOLUTION IN 2 MONTHS
     Route: 042
  11. TOPIRAMATE. [Suspect]
     Active Substance: TOPIRAMATE
     Dosage: 50 MILLIGRAM IN 3 MONTHS
     Route: 065
  12. TOPIRAMATE. [Suspect]
     Active Substance: TOPIRAMATE
     Dosage: 50 MILLIGRAM, RESTARTED IN EVENING
     Route: 065
  13. OMNIPAQUE [Concomitant]
     Active Substance: IOHEXOL
     Indication: BACK PAIN
     Dosage: 300 MG IODINE/ML SOLUTION
     Route: 042
  14. LIDOCAINE. [Concomitant]
     Active Substance: LIDOCAINE
     Dosage: 5% IN 5 ML IN 5 MONTHS
     Route: 008
  15. METHYLPREDNISOLONE. [Concomitant]
     Active Substance: METHYLPREDNISOLONE
     Dosage: 80 MILLIGRAM IN 2 MONTHS
     Route: 008
  16. METHYLPREDNISOLONE. [Concomitant]
     Active Substance: METHYLPREDNISOLONE
     Dosage: 80 MILLIGRAM 4TH INJECTION
     Route: 008

REACTIONS (4)
  - Tremor [Recovered/Resolved]
  - Myalgia [Recovered/Resolved]
  - Drug dependence [Unknown]
  - Withdrawal syndrome [Recovered/Resolved]
